FAERS Safety Report 15220250 (Version 1)
Quarter: 2018Q3

REPORT INFORMATION
  Report Type: Spontaneous
  Country: US (occurrence: US)
  Receive Date: 20180731
  Receipt Date: 20180731
  Transmission Date: 20181010
  Serious: Yes (Hospitalization, Other)
  Sender: FDA-Public Use
  Company Number: US-EMMAUS MEDICAL, INC.-EMM201805-000089

PATIENT
  Sex: Female

DRUGS (10)
  1. FLUZONE HIGH?DOSE PF 2017 [Concomitant]
  2. ENDARI [Suspect]
     Active Substance: GLUTAMINE
     Indication: SICKLE CELL DISEASE
     Route: 048
     Dates: start: 20180215
  3. ZOFRAN [Concomitant]
     Active Substance: ONDANSETRON HYDROCHLORIDE
  4. TYLENOL [Concomitant]
     Active Substance: ACETAMINOPHEN
  5. ZOLOFT [Concomitant]
     Active Substance: SERTRALINE HYDROCHLORIDE
  6. ONDANSETRON [Concomitant]
     Active Substance: ONDANSETRON
  7. JADENU [Concomitant]
     Active Substance: DEFERASIROX
  8. FOLIC ACID. [Concomitant]
     Active Substance: FOLIC ACID
  9. METHADONE [Concomitant]
     Active Substance: METHADONE HYDROCHLORIDE
  10. ADVIL [Concomitant]
     Active Substance: IBUPROFEN

REACTIONS (2)
  - Drug dose omission [Unknown]
  - Sickle cell anaemia with crisis [Unknown]
